FAERS Safety Report 7750345-2 (Version None)
Quarter: 2011Q3

REPORT INFORMATION
  Report Type: 
  Country: None (occurrence: None)
  Receive Date: 20110912
  Receipt Date: 20110831
  Transmission Date: 20111222
  Serious: Yes (Disabling, Other)
  Sender: FDA-Public Use
  Company Number: 2011-3610

PATIENT
  Age: 51 Year
  Sex: Male

DRUGS (1)
  1. DYSPORT (BOTULINUM TOXIN TYPE A) (BOTULINUM TOXIN TYPE A) ABOBOTULINIM [Suspect]
     Indication: MUSCLE SPASTICITY
     Dosage: 1000 UNITS (1000 UNITS, SINGLE CYCLE), INTRAMUSCULAR
     Route: 030
     Dates: start: 20100716, end: 20100716

REACTIONS (4)
  - VERTIGO [None]
  - OCULAR MYASTHENIA [None]
  - NAUSEA [None]
  - DRUG INEFFECTIVE [None]
